FAERS Safety Report 12693988 (Version 1)
Quarter: 2016Q3

REPORT INFORMATION
  Report Type: Spontaneous
  Country: US (occurrence: US)
  Receive Date: 20160829
  Receipt Date: 20160829
  Transmission Date: 20161109
  Serious: No
  Sender: FDA-Public Use
  Company Number: US-PFIZER INC-2016401186

PATIENT
  Age: 64 Year
  Sex: Female

DRUGS (2)
  1. GABAPENTIN. [Suspect]
     Active Substance: GABAPENTIN
     Indication: TOXIC NEUROPATHY
     Dosage: 100 MG, UNK
     Route: 048
  2. LYRICA [Suspect]
     Active Substance: PREGABALIN
     Indication: TOXIC NEUROPATHY
     Dosage: 75 MG, UNK
     Route: 048

REACTIONS (1)
  - Drug ineffective for unapproved indication [Unknown]
